FAERS Safety Report 10903018 (Version 4)
Quarter: 2015Q2

REPORT INFORMATION
  Report Type: Spontaneous
  Country: JP (occurrence: JP)
  Receive Date: 20150311
  Receipt Date: 20150528
  Transmission Date: 20150821
  Serious: Yes (Hospitalization, Other)
  Sender: FDA-Public Use
  Company Number: JP-UCBSA-2015006039

PATIENT
  Age: 22 Year
  Sex: Male

DRUGS (13)
  1. KEPPRA [Suspect]
     Active Substance: LEVETIRACETAM
     Dosage: 1750MG DAILY
     Route: 048
     Dates: start: 20140917
  2. HYSERENIN [Suspect]
     Active Substance: VALPROATE SODIUM
     Indication: EPILEPSY
     Dosage: 800MG DAILY
     Route: 048
     Dates: start: 20130904, end: 20131217
  3. KEPPRA [Suspect]
     Active Substance: LEVETIRACETAM
     Indication: EPILEPSY
     Dosage: 500 MG, 2X/DAY (BID)
     Route: 048
     Dates: start: 20130904, end: 20140702
  4. ALEVIATIN [Concomitant]
     Active Substance: PHENYTOIN SODIUM
     Indication: PRODUCT USED FOR UNKNOWN INDICATION
     Dosage: UNK
     Route: 048
     Dates: start: 20130904, end: 20140827
  5. MYSTAN [Concomitant]
     Active Substance: CLOBAZAM
     Indication: PRODUCT USED FOR UNKNOWN INDICATION
     Dosage: UNK
     Route: 048
     Dates: start: 20120920
  6. KEPPRA [Suspect]
     Active Substance: LEVETIRACETAM
     Indication: EPILEPSY
     Dosage: 1000 MG, ONCE DAILY (QD)
     Route: 048
     Dates: start: 20140703, end: 20140820
  7. HYSERENIN [Suspect]
     Active Substance: VALPROATE SODIUM
     Dosage: 1000MG DAILY
     Route: 048
     Dates: start: 20140108, end: 20140319
  8. KEPPRA [Suspect]
     Active Substance: LEVETIRACETAM
     Dosage: 1500MG DAILY
     Route: 048
     Dates: start: 20140821, end: 20140916
  9. ALEVIATIN [Concomitant]
     Active Substance: PHENYTOIN SODIUM
     Dosage: UNK
     Route: 048
     Dates: start: 20140828
  10. ACETAMINOPHEN. [Concomitant]
     Active Substance: ACETAMINOPHEN
     Indication: PRODUCT USED FOR UNKNOWN INDICATION
     Dosage: UNK
     Route: 048
     Dates: start: 20141128
  11. SODIUM VALPROATE [Suspect]
     Active Substance: VALPROATE SODIUM
     Indication: EPILEPSY
     Dosage: 1000MG DAILY
     Route: 048
     Dates: start: 20140320, end: 20140902
  12. HYSERENIN [Suspect]
     Active Substance: VALPROATE SODIUM
     Dosage: 900MG DAILY
     Route: 048
     Dates: start: 20131218, end: 20140107
  13. SODIUM VALPROATE [Suspect]
     Active Substance: VALPROATE SODIUM
     Dosage: 1200MG DAILY
     Route: 048
     Dates: start: 20140903

REACTIONS (5)
  - Anticonvulsant drug level decreased [Recovering/Resolving]
  - Wrong technique in drug usage process [Unknown]
  - Seizure [Recovered/Resolved]
  - Off label use [Unknown]
  - Pneumonia [Recovering/Resolving]

NARRATIVE: CASE EVENT DATE: 20130904
